FAERS Safety Report 11881329 (Version 1)
Quarter: 2015Q4

REPORT INFORMATION
  Report Type: Spontaneous
  Country: DE (occurrence: DE)
  Receive Date: 20151231
  Receipt Date: 20151231
  Transmission Date: 20160305
  Serious: Yes (Other)
  Sender: FDA-Public Use
  Company Number: DE-AUROBINDO-AUR-APL-2015-11754

PATIENT
  Age: 31 Year
  Sex: Female
  Weight: 55 kg

DRUGS (5)
  1. VENLAFAXINE [Suspect]
     Active Substance: VENLAFAXINE HYDROCHLORIDE
     Indication: DEPRESSION
     Dosage: 300 MG, DAILY
     Route: 048
     Dates: start: 20141021, end: 20150701
  2. FOLIO [Concomitant]
     Active Substance: FOLIC ACID
     Indication: VITAMIN SUPPLEMENTATION
     Dosage: 0.4 MG, DAILY
     Route: 048
  3. AMITRIPTYLIN [Concomitant]
     Active Substance: AMITRIPTYLINE
     Indication: DEPRESSION
     Dosage: 50 MG, DAILY
     Route: 048
  4. URSODEOXYCHOLIC ACID [Concomitant]
     Active Substance: URSODIOL
     Indication: CHOLESTASIS OF PREGNANCY
     Dosage: 150 MG, DAILY
     Route: 048
  5. SEROQUEL [Suspect]
     Active Substance: QUETIAPINE FUMARATE
     Indication: PSYCHOTIC DISORDER
     Dosage: 150 MG, DAILY
     Route: 048
     Dates: start: 20151021, end: 20150701

REACTIONS (2)
  - Exposure during pregnancy [Unknown]
  - Cholestasis [Unknown]
